FAERS Safety Report 8017572-0 (Version None)
Quarter: 2011Q4

REPORT INFORMATION
  Report Type: 
  Country: None (occurrence: None)
  Receive Date: 20111229
  Receipt Date: 20111229
  Transmission Date: 20120403
  Serious: Yes (Hospitalization)
  Sender: FDA-Public Use
  Company Number: None

PATIENT
  Age: 81 Year
  Sex: Female
  Weight: 99.2 kg

DRUGS (1)
  1. SEPTRA [Suspect]
     Indication: URINARY TRACT INFECTION
     Dosage: ONCE PO RECENT
     Route: 048

REACTIONS (5)
  - ACUTE RESPIRATORY FAILURE [None]
  - PULMONARY OEDEMA [None]
  - SEPSIS [None]
  - HYPERTENSION [None]
  - ACUTE MYOCARDIAL INFARCTION [None]
